FAERS Safety Report 9178208 (Version 1)
Quarter: 2013Q1

REPORT INFORMATION
  Report Type: Spontaneous
  Country: US (occurrence: US)
  Receive Date: 20130321
  Receipt Date: 20130321
  Transmission Date: 20140127
  Serious: Yes (Hospitalization)
  Sender: FDA-Public Use
  Company Number: US-ELI_LILLY_AND_COMPANY-US201301006369

PATIENT
  Age: 56 Year
  Sex: Male
  Weight: 87.08 kg

DRUGS (5)
  1. EFFIENT [Suspect]
     Dosage: UNK
     Dates: start: 20120221, end: 20121014
  2. ASPIRIN [Concomitant]
  3. LISINOPRIL [Concomitant]
  4. NITROGLYCERIN [Concomitant]
  5. TAMSULOSIN [Concomitant]

REACTIONS (1)
  - Inguinal hernia [Unknown]
